FAERS Safety Report 4853741-6 (Version None)
Quarter: 2005Q4

REPORT INFORMATION
  Report Type: 
  Country: None (occurrence: None)
  Receive Date: 20051212
  Receipt Date: 20051201
  Transmission Date: 20060501
  Serious: Yes (Other)
  Sender: FDA-Public Use
  Company Number: 2005164177

PATIENT
  Age: 45 Year
  Sex: Male

DRUGS (3)
  1. ZOLOFT [Suspect]
     Indication: ANXIETY
  2. ALL OTHER THERAPEUTIC PRODUCTS (ALL OTHER THERAPEUTIC PRODUCTS) [Concomitant]
  3. PROPECIA [Concomitant]

REACTIONS (3)
  - GAMBLING [None]
  - SELF-INJURIOUS IDEATION [None]
  - WEIGHT INCREASED [None]
